FAERS Safety Report 10384023 (Version 2)
Quarter: 2014Q3

REPORT INFORMATION
  Report Type: Spontaneous
  Country: JP (occurrence: JP)
  Receive Date: 20140814
  Receipt Date: 20140901
  Transmission Date: 20150326
  Serious: Yes (Other)
  Sender: FDA-Public Use
  Company Number: PHHY2014JP099442

PATIENT
  Sex: Male

DRUGS (7)
  1. OXYCONTIN [Concomitant]
     Active Substance: OXYCODONE HYDROCHLORIDE
     Indication: TOOTHACHE
     Dosage: 20 MG, UNK
     Route: 048
     Dates: start: 20130707, end: 20131009
  2. TAXOTERE [Concomitant]
     Active Substance: DOCETAXEL
     Dosage: 150 MG, UNK
     Route: 042
     Dates: start: 201307, end: 20131030
  3. MORPHINE HYDROCHLORIDE TRIHYDRATE [Concomitant]
     Indication: TOOTHACHE
     Dosage: 40 MG, UNK
     Dates: start: 20130419, end: 20130716
  4. ZOMETA [Suspect]
     Active Substance: ZOLEDRONIC ACID
     Indication: METASTASES TO BONE
     Dosage: 4 MG, (PER ADMINISTARTION)
     Route: 041
     Dates: end: 20130413
  5. LOXONIN [Concomitant]
     Active Substance: LOXOPROFEN SODIUM
     Indication: TOOTHACHE
     Dosage: 180 MG, UNK
     Dates: start: 20131010
  6. TRAMCET [Concomitant]
     Active Substance: ACETAMINOPHEN\TRAMADOL
     Indication: TOOTHACHE
     Dosage: UNK UKN, UNK
     Route: 048
     Dates: start: 20131023, end: 20140418
  7. ZOMETA [Suspect]
     Active Substance: ZOLEDRONIC ACID
     Dosage: 4 MG, (PER ADMINISTARTION)
     Route: 041
     Dates: start: 201307, end: 20131030

REACTIONS (2)
  - Osteonecrosis of jaw [Not Recovered/Not Resolved]
  - Exposed bone in jaw [Not Recovered/Not Resolved]

NARRATIVE: CASE EVENT DATE: 20131030
